FAERS Safety Report 12397641 (Version 4)
Quarter: 2016Q3

REPORT INFORMATION
  Report Type: Report from Study
  Country: PH (occurrence: PH)
  Receive Date: 20160524
  Receipt Date: 20160816
  Transmission Date: 20161109
  Serious: Yes (Hospitalization, Other)
  Sender: FDA-Public Use
  Company Number: PHHY2016PH070378

PATIENT
  Age: 52 Year
  Sex: Female

DRUGS (3)
  1. AFINITOR [Suspect]
     Active Substance: EVEROLIMUS
     Indication: BREAST CANCER
     Dosage: 10 MG, QD
     Route: 048
     Dates: start: 20160405, end: 20160416
  2. AFINITOR [Suspect]
     Active Substance: EVEROLIMUS
     Dosage: 5 MG, QOD
     Route: 048
     Dates: start: 20160515, end: 20160612
  3. AFINITOR [Suspect]
     Active Substance: EVEROLIMUS
     Dosage: 10 MG, QD
     Route: 048
     Dates: start: 20160612

REACTIONS (11)
  - Dysuria [Recovered/Resolved]
  - Fatigue [Recovering/Resolving]
  - Pulmonary oedema [Not Recovered/Not Resolved]
  - Nausea [Recovered/Resolved with Sequelae]
  - Urinary tract infection [Recovered/Resolved]
  - Decreased appetite [Recovered/Resolved with Sequelae]
  - Asthenia [Recovering/Resolving]
  - Acute kidney injury [Recovered/Resolved with Sequelae]
  - Chest discomfort [Recovered/Resolved]
  - Cough [Recovering/Resolving]
  - Pleural effusion [Unknown]

NARRATIVE: CASE EVENT DATE: 20160415
